FAERS Safety Report 21576458 (Version 1)
Quarter: 2022Q4

REPORT INFORMATION
  Report Type: Spontaneous
  Country: US (occurrence: None)
  Receive Date: 20221109
  Receipt Date: 20221109
  Transmission Date: 20230113
  Serious: No
  Sender: FDA-Public Use
  Company Number: None

PATIENT
  Age: 46 Year
  Sex: Female

DRUGS (1)
  1. AMBRISENTAN [Suspect]
     Active Substance: AMBRISENTAN
     Dosage: FREQUENCY : DAILY;?
     Route: 048

REACTIONS (4)
  - Right ventricular failure [None]
  - Pulmonary arterial pressure increased [None]
  - Pericardial effusion [None]
  - Chest pain [None]

NARRATIVE: CASE EVENT DATE: 20221028
